FAERS Safety Report 25372574 (Version 2)
Quarter: 2025Q2

REPORT INFORMATION
  Report Type: Spontaneous
  Country: AT (occurrence: AT)
  Receive Date: 20250529
  Receipt Date: 20250606
  Transmission Date: 20250717
  Serious: Yes (Other)
  Sender: TEVA
  Company Number: AT-TEVA-VS-3334143

PATIENT
  Age: 42 Year
  Sex: Female
  Weight: 57 kg

DRUGS (10)
  1. GABAPENTIN [Suspect]
     Active Substance: GABAPENTIN
     Indication: Chronic kidney disease-associated pruritus
     Route: 065
     Dates: start: 202205
  2. SEVELAMER [Concomitant]
     Active Substance: SEVELAMER
     Indication: Hyperphosphataemia
     Route: 065
     Dates: start: 2022
  3. CALCITRIOL [Concomitant]
     Active Substance: CALCITRIOL
     Indication: Hypocalcaemia
     Route: 065
  4. CALCIUM [Concomitant]
     Active Substance: CALCIUM
     Indication: Hypocalcaemia
     Route: 065
  5. INSULIN NOS [Concomitant]
     Active Substance: INSULIN NOS
     Indication: Type 2 diabetes mellitus
     Route: 065
     Dates: start: 201906
  6. POLIDOCANOL [Suspect]
     Active Substance: POLIDOCANOL
     Indication: Chronic kidney disease-associated pruritus
     Route: 061
     Dates: start: 2022
  7. ETELCALCETIDE [Suspect]
     Active Substance: ETELCALCETIDE
     Indication: Hyperparathyroidism
     Route: 042
  8. CETIRIZINE [Suspect]
     Active Substance: CETIRIZINE HYDROCHLORIDE
     Indication: Chronic kidney disease-associated pruritus
     Route: 065
     Dates: start: 202205
  9. DIPHENHYDRAMINE [Suspect]
     Active Substance: DIPHENHYDRAMINE
     Indication: Chronic kidney disease-associated pruritus
     Route: 065
     Dates: start: 202205
  10. DIFELIKEFALIN [Suspect]
     Active Substance: DIFELIKEFALIN
     Indication: Chronic kidney disease-associated pruritus
     Route: 042
     Dates: start: 202206

REACTIONS (2)
  - Drug ineffective [Unknown]
  - Vertigo [Recovered/Resolved]

NARRATIVE: CASE EVENT DATE: 20220101
